FAERS Safety Report 25123574 (Version 1)
Quarter: 2025Q1

REPORT INFORMATION
  Report Type: Spontaneous
  Country: US (occurrence: US)
  Receive Date: 20250326
  Receipt Date: 20250326
  Transmission Date: 20250409
  Serious: No
  Sender: GRIFOLS
  Company Number: US-IGSA-BIG0027492

PATIENT
  Sex: Male
  Weight: 84 kg

DRUGS (1)
  1. PROLASTIN-C LIQUID [Suspect]
     Active Substance: .ALPHA.1-PROTEINASE INHIBITOR HUMAN
     Indication: Alpha-1 antitrypsin deficiency
     Dosage: 5040 MILLIGRAM, Q.WK.
     Dates: start: 20230822

REACTIONS (1)
  - Urticaria [Not Recovered/Not Resolved]
